FAERS Safety Report 6672752-1 (Version None)
Quarter: 2010Q2

REPORT INFORMATION
  Report Type: 
  Country: None (occurrence: None)
  Receive Date: 20100408
  Receipt Date: 20100329
  Transmission Date: 20101027
  Serious: Yes (Other)
  Sender: FDA-Public Use
  Company Number: JP-PFIZER INC-2010041474

PATIENT
  Age: 60 Year
  Sex: Male
  Weight: 78.5 kg

DRUGS (4)
  1. SUNITINIB MALATE [Suspect]
     Indication: RENAL CELL CARCINOMA
     Dosage: 50 MG, 1X/DAY
     Dates: start: 20090709
  2. NAPROXEN [Concomitant]
     Route: 048
     Dates: start: 20090708, end: 20090722
  3. THYRADIN S [Concomitant]
     Dosage: UNK
     Route: 048
     Dates: start: 20090718
  4. MAGNESIUM OXIDE [Concomitant]
     Route: 048
     Dates: start: 20090720, end: 20090731

REACTIONS (1)
  - RENAL IMPAIRMENT [None]
